FAERS Safety Report 16280678 (Version 2)
Quarter: 2019Q2

REPORT INFORMATION
  Report Type: Spontaneous
  Country: CN (occurrence: CN)
  Receive Date: 20190507
  Receipt Date: 20190527
  Transmission Date: 20190711
  Serious: Yes (Hospitalization, Other)
  Sender: FDA-Public Use
  Company Number: CN-ACCORD-126199

PATIENT
  Age: 22 Year
  Sex: Female
  Weight: 51 kg

DRUGS (2)
  1. TOPIRAMATE. [Interacting]
     Active Substance: TOPIRAMATE
     Indication: BINGE EATING
     Dosage: 25 MG/ DAY FOR 4 DAYS, AND THE DOSE WAS INCREASED TO 50MG FOR 4 DAYS
  2. QUETIAPINE. [Suspect]
     Active Substance: QUETIAPINE
     Indication: BIPOLAR II DISORDER
     Dosage: ESCALATED UP TO 500 MG/NIGHT

REACTIONS (2)
  - Mania [Recovered/Resolved]
  - Drug interaction [Unknown]
